FAERS Safety Report 17283830 (Version 1)
Quarter: 2020Q1

REPORT INFORMATION
  Report Type: Spontaneous
  Country: JP (occurrence: JP)
  Receive Date: 20200117
  Receipt Date: 20200117
  Transmission Date: 20200409
  Serious: Yes (Other)
  Sender: FDA-Public Use
  Company Number: PHJP2019JP012771

PATIENT
  Age: 72 Year
  Sex: Male

DRUGS (2)
  1. TAFINLAR [Suspect]
     Active Substance: DABRAFENIB MESYLATE
     Indication: MALIGNANT MELANOMA STAGE III
     Dosage: UNK
     Route: 048
     Dates: start: 201807
  2. MEKINIST [Suspect]
     Active Substance: TRAMETINIB DIMETHYL SULFOXIDE
     Indication: MALIGNANT MELANOMA STAGE III
     Dosage: UNK
     Route: 048
     Dates: start: 201807

REACTIONS (3)
  - Lymphadenopathy [Unknown]
  - Second primary malignancy [Unknown]
  - Diffuse large B-cell lymphoma stage II [Unknown]

NARRATIVE: CASE EVENT DATE: 201901
